FAERS Safety Report 12848786 (Version 1)
Quarter: 2016Q4

REPORT INFORMATION
  Report Type: Spontaneous
  Country: US (occurrence: US)
  Receive Date: 20161014
  Receipt Date: 20161014
  Transmission Date: 20170207
  Serious: No
  Sender: FDA-Public Use
  Company Number: US-JNJFOC-20160804366

PATIENT
  Age: 90 Year
  Sex: Male
  Weight: 102.06 kg

DRUGS (2)
  1. TYLENOL EXTRA STRENGTH [Suspect]
     Active Substance: ACETAMINOPHEN
     Indication: BACK PAIN
     Dosage: 7-8 CAPLETS AT ONE TIME
     Route: 048
  2. CELEBREX [Concomitant]
     Active Substance: CELECOXIB
     Indication: PAIN
     Route: 065

REACTIONS (4)
  - Off label use [Unknown]
  - Overdose [Unknown]
  - Product use issue [Unknown]
  - Product packaging issue [Unknown]
